FAERS Safety Report 24025486 (Version 2)
Quarter: 2024Q3

REPORT INFORMATION
  Report Type: Report from Study
  Country: PH (occurrence: PH)
  Receive Date: 20240628
  Receipt Date: 20240710
  Transmission Date: 20241017
  Serious: No
  Sender: ROCHE
  Company Number: PH-ROCHE-3443795

PATIENT
  Age: 67 Year
  Sex: Female

DRUGS (1)
  1. PHESGO [Suspect]
     Active Substance: HYALURONIDASE-ZZXF\PERTUZUMAB\TRASTUZUMAB
     Indication: Breast cancer metastatic
     Dosage: 600MG X 1 VIAL ;ONGOING: YES
     Route: 058

REACTIONS (2)
  - Malaise [Unknown]
  - Cough [Unknown]
